FAERS Safety Report 7648613-8 (Version None)
Quarter: 2011Q3

REPORT INFORMATION
  Report Type: 
  Country: None (occurrence: None)
  Receive Date: 20110801
  Receipt Date: 20110718
  Transmission Date: 20111222
  Serious: Yes (Life-Threatening, Other)
  Sender: FDA-Public Use
  Company Number: PHHY2011US64984

PATIENT
  Age: 80 Year
  Sex: Female

DRUGS (3)
  1. DIOVAN [Suspect]
     Dosage: 1 DF, QD (160 MG)
     Route: 048
  2. ASPIRIN [Concomitant]
     Dosage: 88 MG, (2 OF THEM A DAY)
  3. GLIBERIDE [Concomitant]

REACTIONS (12)
  - OROPHARYNGEAL PAIN [None]
  - PRURITUS [None]
  - NAUSEA [None]
  - MALAISE [None]
  - WRONG TECHNIQUE IN DRUG USAGE PROCESS [None]
  - FEELING ABNORMAL [None]
  - ARTHRALGIA [None]
  - MUSCULAR WEAKNESS [None]
  - FALL [None]
  - ABDOMINAL DISCOMFORT [None]
  - HYPERTENSION [None]
  - FATIGUE [None]
